FAERS Safety Report 8388746-4 (Version None)
Quarter: 2012Q2

REPORT INFORMATION
  Report Type: 
  Country: None (occurrence: None)
  Receive Date: 20120528
  Receipt Date: 20120515
  Transmission Date: 20120825
  Serious: Yes (Other)
  Sender: FDA-Public Use
  Company Number: FR-BRISTOL-MYERS SQUIBB COMPANY-16624710

PATIENT
  Age: 28 Year
  Sex: Female

DRUGS (4)
  1. CYCLOPHOSPHAMIDE [Suspect]
     Indication: EWING'S SARCOMA
  2. VINCRISTINE [Suspect]
     Indication: EWING'S SARCOMA
  3. DOXORUBICIN HCL [Suspect]
     Indication: EWING'S SARCOMA
  4. IFOSFAMIDE [Suspect]
     Indication: EWING'S SARCOMA
     Dosage: 1DF= 9G/M3 OVER 5 DAYS.

REACTIONS (3)
  - PREGNANCY [None]
  - LIVE BIRTH [None]
  - OLIGOHYDRAMNIOS [None]
